FAERS Safety Report 6623584-1 (Version None)
Quarter: 2010Q1

REPORT INFORMATION
  Report Type: 
  Country: None (occurrence: None)
  Receive Date: 20100310
  Receipt Date: 20091106
  Transmission Date: 20100710
  Serious: No
  Sender: FDA-Public Use
  Company Number: US-BIOGENIDEC-2009BI036027

PATIENT
  Age: 27 Year
  Sex: Female

DRUGS (7)
  1. AVONEX [Suspect]
     Indication: MULTIPLE SCLEROSIS
     Route: 030
     Dates: start: 19980101, end: 20030101
  2. AVONEX [Suspect]
     Route: 030
     Dates: start: 20030101, end: 20030101
  3. AVONEX [Suspect]
     Route: 030
     Dates: start: 20030101
  4. PROVIGIL [Concomitant]
     Indication: FATIGUE
     Route: 048
  5. H1N1 VACCINE [Concomitant]
     Indication: INFLUENZA IMMUNISATION
     Dates: start: 20091022, end: 20091022
  6. SEASONAL FLU VACCINE [Concomitant]
     Indication: INFLUENZA IMMUNISATION
     Dates: start: 20091029, end: 20091029
  7. MULTIVITAMIN (NOS) [Concomitant]
     Route: 048

REACTIONS (3)
  - FEELING ABNORMAL [None]
  - INFLUENZA LIKE ILLNESS [None]
  - STRESS [None]
